FAERS Safety Report 11425242 (Version 2)
Quarter: 2015Q3

REPORT INFORMATION
  Report Type: Spontaneous
  Country: US (occurrence: US)
  Receive Date: 20150821
  Receipt Date: 20150903
  Transmission Date: 20151125
  Serious: No
  Sender: FDA-Public Use
  Company Number: US-ELI_LILLY_AND_COMPANY-US201102004241

PATIENT
  Age: 73 Year
  Sex: Female
  Weight: 69.84 kg

DRUGS (12)
  1. FORADIL [Concomitant]
     Active Substance: FORMOTEROL FUMARATE
  2. ACCUPRIL [Concomitant]
     Active Substance: QUINAPRIL HYDROCHLORIDE
  3. HUMULIN N [Suspect]
     Active Substance: INSULIN HUMAN
     Indication: DIABETES MELLITUS
     Dosage: 18 U, EACH MORNING
  4. HUMULIN N [Suspect]
     Active Substance: INSULIN HUMAN
     Dosage: 16 U, EACH EVENING
  5. HUMULIN N [Suspect]
     Active Substance: INSULIN HUMAN
     Dosage: 19 U, EACH MORNING
  6. FUROSEMIDE. [Concomitant]
     Active Substance: FUROSEMIDE
  7. LABETALOL [Concomitant]
     Active Substance: LABETALOL\LABETALOL HYDROCHLORIDE
  8. METFORMIN [Concomitant]
     Active Substance: METFORMIN HYDROCHLORIDE
  9. HUMULIN N [Suspect]
     Active Substance: INSULIN HUMAN
     Dosage: 15 U, EACH EVENING
  10. HUMALOG [Suspect]
     Active Substance: INSULIN LISPRO
  11. CADEVIT [Concomitant]
  12. VESICARE [Concomitant]
     Active Substance: SOLIFENACIN SUCCINATE

REACTIONS (5)
  - Blood glucose increased [Recovered/Resolved]
  - Underdose [Recovered/Resolved]
  - Blood glucose decreased [Unknown]
  - Incorrect dose administered by device [Unknown]
  - Visual impairment [Not Recovered/Not Resolved]

NARRATIVE: CASE EVENT DATE: 20110214
